FAERS Safety Report 14923724 (Version 6)
Quarter: 2019Q2

REPORT INFORMATION
  Report Type: Spontaneous
  Country: US (occurrence: US)
  Receive Date: 20180522
  Receipt Date: 20190627
  Transmission Date: 20190711
  Serious: Yes (Hospitalization, Other)
  Sender: FDA-Public Use
  Company Number: US-PFIZER INC-2018206778

PATIENT
  Age: 78 Year
  Sex: Female
  Weight: 62 kg

DRUGS (2)
  1. IBRANCE [Suspect]
     Active Substance: PALBOCICLIB
     Indication: BREAST CANCER METASTATIC
     Dosage: 125 MG, CYCLIC (ONCE DAILY, X 21 DAYS, THEN 7 DAYS OFF/ D1-21 Q28 DAYS)
     Route: 048
     Dates: start: 20180426
  2. IBRANCE [Suspect]
     Active Substance: PALBOCICLIB
     Dosage: UNK
     Route: 048

REACTIONS (10)
  - Pain in extremity [Unknown]
  - Decreased appetite [Unknown]
  - Alopecia [Unknown]
  - Nephrolithiasis [Unknown]
  - Restless legs syndrome [Unknown]
  - Pneumonia [Unknown]
  - Abdominal pain [Unknown]
  - Taste disorder [Unknown]
  - Asthenia [Unknown]
  - Epistaxis [Unknown]

NARRATIVE: CASE EVENT DATE: 2018
